FAERS Safety Report 7479111-2 (Version None)
Quarter: 2011Q2

REPORT INFORMATION
  Report Type: 
  Country: None (occurrence: None)
  Receive Date: 20110513
  Receipt Date: 20110509
  Transmission Date: 20111010
  Serious: Yes (Death, Hospitalization)
  Sender: FDA-Public Use
  Company Number: ES-AMGEN-ESPNI2011023711

PATIENT
  Age: 60 Year
  Sex: Male

DRUGS (2)
  1. FILGRASTIM [Suspect]
     Indication: MULTIPLE MYELOMA
     Dosage: 30 MG, QD
     Route: 058
     Dates: start: 20110507
  2. LENALIDOMIDE [Concomitant]
     Dosage: 25 MG, QD
     Route: 048
     Dates: start: 20110501, end: 20110506

REACTIONS (4)
  - SEPTIC SHOCK [None]
  - THROMBOCYTOPENIA [None]
  - NEUTROPENIA [None]
  - ANAEMIA [None]
